FAERS Safety Report 11320939 (Version 1)
Quarter: 2015Q3

REPORT INFORMATION
  Report Type: Spontaneous
  Country: US (occurrence: US)
  Receive Date: 20150729
  Receipt Date: 20150729
  Transmission Date: 20151125
  Serious: No
  Sender: FDA-Public Use
  Company Number: US-PFIZER INC-2015241212

PATIENT
  Age: 52 Year
  Sex: Female
  Weight: 77 kg

DRUGS (14)
  1. ASPIRIN. [Concomitant]
     Active Substance: ASPIRIN
     Dosage: 81 MG, 1X/DAY
  2. TYLENOL WITH CODEINE [Concomitant]
     Active Substance: ACETAMINOPHEN\CODEINE PHOSPHATE
     Dosage: UNK, 2X/DAY
  3. FIORINAL WITH CODEINE [Concomitant]
     Active Substance: ASPIRIN\BUTALBITAL\CAFFEINE\CODEINE PHOSPHATE
     Indication: MIGRAINE
     Dosage: UNK, AS NEEDED, WHEN MIGRAINE GETS REALLY BAD; DOES NOT TAKE EVERY DAY
  4. VITAMIN D3 [Concomitant]
     Active Substance: CHOLECALCIFEROL
     Dosage: 5000 IU, 1X/DAY
  5. LAXA CLEAR [Concomitant]
     Indication: CONSTIPATION
     Dosage: 17 G, 1X/DAY, EVERY MORNING WITH COFFEE
  6. AMITRIPTYLINE [Concomitant]
     Active Substance: AMITRIPTYLINE
     Indication: HEADACHE
     Dosage: 25 MG, 1X/DAY, AT BEDTIME
  7. LYRICA [Suspect]
     Active Substance: PREGABALIN
     Indication: FIBROMYALGIA
     Dosage: 75 MG, 2X/DAY
  8. OMEPRAZOLE. [Concomitant]
     Active Substance: OMEPRAZOLE
     Indication: DYSPEPSIA
     Dosage: 20 MG, 1X/DAY
  9. CALCIUM 600 WITH VITAMIN D [Concomitant]
     Dosage: 600MG/400IU, 1X/DAY
  10. MELATONIN [Concomitant]
     Active Substance: MELATONIN
     Indication: SLEEP DISORDER
     Dosage: 15 MG, UNK, TAKES 1/2 HOUR BEFORE GOING TO BED
  11. PREDNISONE. [Concomitant]
     Active Substance: PREDNISONE
     Dosage: TAPERING DOSE
  12. OMEPRAZOLE. [Concomitant]
     Active Substance: OMEPRAZOLE
     Indication: GASTROOESOPHAGEAL REFLUX DISEASE
  13. TUMS /00193601/ [Concomitant]
     Active Substance: CALCIUM CARBONATE\MAGNESIUM CARBONATE\MAGNESIUM TRISILICATE
     Indication: GASTROOESOPHAGEAL REFLUX DISEASE
  14. AMITRIPTYLINE [Concomitant]
     Active Substance: AMITRIPTYLINE
     Dosage: 100 MG, 1X/DAY, AT DINNERTIME

REACTIONS (10)
  - Limb discomfort [Recovering/Resolving]
  - Gait disturbance [Unknown]
  - Pre-existing condition improved [Unknown]
  - Pain [Unknown]
  - Restlessness [Unknown]
  - Migraine [Unknown]
  - Restless legs syndrome [Unknown]
  - Constipation [Recovering/Resolving]
  - Therapeutic response unexpected [Unknown]
  - Discomfort [Unknown]
